FAERS Safety Report 7222187-8 (Version None)
Quarter: 2011Q1

REPORT INFORMATION
  Report Type: 
  Country: None (occurrence: None)
  Receive Date: 20110103
  Receipt Date: 20080229
  Transmission Date: 20110831
  Serious: No
  Sender: FDA-Public Use
  Company Number: JPI-P-001974

PATIENT
  Age: 50 Year
  Sex: Male

DRUGS (5)
  1. XYREM [Suspect]
     Indication: CATAPLEXY
     Dosage: SEE IMAGE
     Route: 048
     Dates: start: 20070725, end: 20070808
  2. XYREM [Suspect]
     Indication: CATAPLEXY
     Dosage: SEE IMAGE
     Route: 048
     Dates: start: 20070826
  3. XYREM [Suspect]
     Indication: CATAPLEXY
     Dosage: SEE IMAGE
     Route: 048
     Dates: start: 20070821, end: 20070825
  4. XYREM [Suspect]
     Indication: CATAPLEXY
     Dosage: SEE IMAGE
     Route: 048
     Dates: start: 20010809, end: 20070815
  5. XYREM [Suspect]
     Indication: CATAPLEXY
     Dosage: SEE IMAGE
     Route: 048
     Dates: start: 20070816, end: 20070820

REACTIONS (16)
  - SOMNOLENCE [None]
  - VERTIGO [None]
  - MUSCLE SPASMS [None]
  - HEADACHE [None]
  - DIARRHOEA [None]
  - HALLUCINATION [None]
  - INSOMNIA [None]
  - FEELING ABNORMAL [None]
  - FEELING HOT [None]
  - PARALYSIS [None]
  - TREMOR [None]
  - MALAISE [None]
  - VISUAL IMPAIRMENT [None]
  - HYPERHIDROSIS [None]
  - ENURESIS [None]
  - ABDOMINAL PAIN [None]
